FAERS Safety Report 13082156 (Version 3)
Quarter: 2017Q2

REPORT INFORMATION
  Report Type: Spontaneous
  Country: US (occurrence: US)
  Receive Date: 20170103
  Receipt Date: 20170426
  Transmission Date: 20170830
  Serious: Yes (Hospitalization, Other)
  Sender: FDA-Public Use
  Company Number: US-BAYER-2016-243784

PATIENT
  Age: 56 Year
  Sex: Male

DRUGS (1)
  1. MAGNEVIST [Suspect]
     Active Substance: GADOPENTETATE DIMEGLUMINE
     Indication: IMAGING PROCEDURE
     Dosage: UNK UNK, ONCE
     Route: 037
     Dates: start: 20161118, end: 20161118

REACTIONS (11)
  - Myalgia [None]
  - Feeling abnormal [None]
  - Meningitis chemical [None]
  - Vision blurred [None]
  - Product use issue [None]
  - Balance disorder [None]
  - Tinnitus [Not Recovered/Not Resolved]
  - Medication residue present [None]
  - Gait disturbance [None]
  - Pruritus [None]
  - Amnesia [None]

NARRATIVE: CASE EVENT DATE: 20161118
